FAERS Safety Report 20247027 (Version 1)
Quarter: 2021Q4

REPORT INFORMATION
  Report Type: Spontaneous
  Country: US (occurrence: None)
  Receive Date: 20211228
  Receipt Date: 20211228
  Transmission Date: 20220303
  Serious: No
  Sender: FDA-Public Use
  Company Number: None

PATIENT
  Age: 55 Year
  Sex: Female

DRUGS (1)
  1. KESIMPTA [Suspect]
     Active Substance: OFATUMUMAB
     Indication: Multiple sclerosis
     Dosage: FREQUENCY : WEEKLY;?
     Route: 058
     Dates: start: 20211220

REACTIONS (4)
  - Multiple sclerosis [None]
  - Product dose omission issue [None]
  - Device leakage [None]
  - Device issue [None]

NARRATIVE: CASE EVENT DATE: 20211227
